FAERS Safety Report 4992940-X (Version None)
Quarter: 2006Q2

REPORT INFORMATION
  Report Type: 
  Country: None (occurrence: None)
  Receive Date: 20060504
  Receipt Date: 20060201
  Transmission Date: 20061013
  Serious: Yes (Hospitalization)
  Sender: FDA-Public Use
  Company Number: US-MERCK-0602USA00236

PATIENT
  Age: 75 Year
  Sex: Female
  Weight: 80 kg

DRUGS (8)
  1. VIOXX [Suspect]
     Indication: ARTHRITIS
     Route: 048
     Dates: start: 19991101, end: 20040910
  2. NORVASC [Concomitant]
     Route: 065
  3. ISOSORBIDE [Concomitant]
     Route: 065
  4. DIOVAN [Concomitant]
     Indication: HYPERTENSION
     Route: 065
  5. ATENOLOL [Concomitant]
     Route: 065
  6. FUROSEMIDE [Concomitant]
     Route: 065
  7. ECOTRIN [Concomitant]
     Route: 065
  8. PRAVACHOL [Concomitant]
     Indication: BLOOD CHOLESTEROL
     Route: 065

REACTIONS (6)
  - HYSTERECTOMY [None]
  - INSOMNIA [None]
  - MYOCARDIAL INFARCTION [None]
  - THROMBOSIS [None]
  - UTERINE DILATION AND CURETTAGE [None]
  - UTERINE DISORDER [None]
